FAERS Safety Report 18882780 (Version 2)
Quarter: 2021Q1

REPORT INFORMATION
  Report Type: Spontaneous
  Country: BR (occurrence: BR)
  Receive Date: 20210212
  Receipt Date: 20210308
  Transmission Date: 20210420
  Serious: Yes (Death, Life-Threatening, Hospitalization, Other)
  Sender: FDA-Public Use
  Company Number: BR-MACLEODS PHARMACEUTICALS US LTD-MAC2021030106

PATIENT

DRUGS (9)
  1. PARACETAMOL [Concomitant]
     Active Substance: ACETAMINOPHEN
     Indication: PAIN
     Dosage: 500 MILLIGRAM, EVERY 4 HOUR
     Route: 065
     Dates: start: 2020
  2. MORPHINE [Suspect]
     Active Substance: MORPHINE
     Dosage: UNK, CONTINUOUS INFUSION/CONTINUOUS PARENTERAL, INFUSION
     Route: 041
     Dates: start: 2020
  3. MORPHINE [Suspect]
     Active Substance: MORPHINE
     Dosage: 5 MILLIGRAM, 4 HOURS
     Route: 042
     Dates: start: 2020
  4. TRAMADOL. [Suspect]
     Active Substance: TRAMADOL
     Indication: PAIN
     Dosage: 100 MILLIGRAM, TID, PER OS
     Route: 048
  5. TRAMADOL. [Suspect]
     Active Substance: TRAMADOL
     Dosage: 100 MILLIGRAM, TID
     Route: 042
  6. TRAMADOL. [Suspect]
     Active Substance: TRAMADOL
     Dosage: UNK, SELF?MEDICATION WITH TRAMADOL SEVERAL TIMES A DAY OWING TO PAIN
     Route: 048
  7. OMEPRAZOLE. [Concomitant]
     Active Substance: OMEPRAZOLE
     Indication: PRODUCT USED FOR UNKNOWN INDICATION
     Dosage: 40 MILLIGRAM, QD
     Route: 048
  8. MORPHINE [Suspect]
     Active Substance: MORPHINE
     Indication: PAIN
     Dosage: 3 MILLIGRAM, PER DOSE
     Route: 042
     Dates: start: 2020
  9. METAMIZOLE [Concomitant]
     Active Substance: METAMIZOLE
     Indication: PAIN
     Dosage: 1000 MILLIGRAM, QID, 6 HOURS
     Route: 042
     Dates: start: 2020

REACTIONS (14)
  - Intentional product misuse [Unknown]
  - Depressed level of consciousness [Unknown]
  - Squamous cell carcinoma of lung [Fatal]
  - Constipation [Not Recovered/Not Resolved]
  - Anaemia [Unknown]
  - Respiratory failure [Fatal]
  - Toxicity to various agents [Fatal]
  - Hyponatraemia [Unknown]
  - Leukocytosis [Unknown]
  - Impaired gastric emptying [Unknown]
  - Gastrointestinal motility disorder [Not Recovered/Not Resolved]
  - Metabolic acidosis [Unknown]
  - Hypochloraemia [Unknown]
  - Miosis [Unknown]

NARRATIVE: CASE EVENT DATE: 2020
